FAERS Safety Report 7722558-7 (Version None)
Quarter: 2011Q3

REPORT INFORMATION
  Report Type: 
  Country: None (occurrence: None)
  Receive Date: 20110831
  Receipt Date: 20110824
  Transmission Date: 20111222
  Serious: Yes (Hospitalization)
  Sender: FDA-Public Use
  Company Number: JP-ABBOTT-11P-087-0848956-00

PATIENT
  Age: 67 Year
  Sex: Male

DRUGS (2)
  1. CLARITHROMYCIN [Suspect]
     Indication: UPPER RESPIRATORY TRACT INFLAMMATION
     Route: 048
     Dates: start: 20110701
  2. ARIPIPRAZOLE [Concomitant]
     Indication: SCHIZOPHRENIA
     Dosage: 9-12MG/DAY
     Route: 048
     Dates: start: 20100101

REACTIONS (3)
  - RENAL FAILURE ACUTE [None]
  - ASTHENIA [None]
  - RHABDOMYOLYSIS [None]
